FAERS Safety Report 7425997-7 (Version None)
Quarter: 2011Q2

REPORT INFORMATION
  Report Type: 
  Country: None (occurrence: None)
  Receive Date: 20110420
  Receipt Date: 20110412
  Transmission Date: 20111010
  Serious: Yes (Death, Other)
  Sender: FDA-Public Use
  Company Number: CN-ROCHE-771527

PATIENT
  Age: 39 Year
  Sex: Male

DRUGS (3)
  1. PEGASYS [Suspect]
     Route: 058
  2. RIBAVARIN [Concomitant]
     Indication: HEPATITIS C
  3. PEGASYS [Suspect]
     Indication: HEPATITIS C
     Route: 058
     Dates: start: 20110225

REACTIONS (4)
  - INTERSTITIAL LUNG DISEASE [None]
  - PLEURAL ADHESION [None]
  - PULMONARY EMBOLISM [None]
  - PLATELET COUNT DECREASED [None]
